FAERS Safety Report 23597019 (Version 2)
Quarter: 2025Q3

REPORT INFORMATION
  Report Type: Spontaneous
  Country: EU (occurrence: EU)
  Receive Date: 20240305
  Receipt Date: 20250714
  Transmission Date: 20251020
  Serious: Yes (Other)
  Sender: MYLAN
  Company Number: EU-SUN PHARMACEUTICAL INDUSTRIES LTD-2024RR-432397

PATIENT
  Age: 28 Year
  Sex: Female

DRUGS (16)
  1. VENLAFAXINE [Suspect]
     Active Substance: VENLAFAXINE HYDROCHLORIDE
     Indication: Depression
  2. VENLAFAXINE [Suspect]
     Active Substance: VENLAFAXINE HYDROCHLORIDE
     Route: 065
  3. VENLAFAXINE [Suspect]
     Active Substance: VENLAFAXINE HYDROCHLORIDE
     Route: 065
  4. VENLAFAXINE [Suspect]
     Active Substance: VENLAFAXINE HYDROCHLORIDE
  5. IBUPROFEN [Suspect]
     Active Substance: IBUPROFEN
     Indication: Migraine
  6. IBUPROFEN [Suspect]
     Active Substance: IBUPROFEN
     Route: 048
  7. IBUPROFEN [Suspect]
     Active Substance: IBUPROFEN
     Route: 048
  8. IBUPROFEN [Suspect]
     Active Substance: IBUPROFEN
  9. AMITRIPTYLINE [Suspect]
     Active Substance: AMITRIPTYLINE
     Indication: Depression
     Dosage: 50 MILLIGRAM, QD (DAILY)
  10. AMITRIPTYLINE [Suspect]
     Active Substance: AMITRIPTYLINE
     Dosage: 50 MILLIGRAM, QD (DAILY)
     Route: 065
  11. AMITRIPTYLINE [Suspect]
     Active Substance: AMITRIPTYLINE
     Dosage: 50 MILLIGRAM, QD (DAILY)
     Route: 065
  12. AMITRIPTYLINE [Suspect]
     Active Substance: AMITRIPTYLINE
     Dosage: 50 MILLIGRAM, QD (DAILY)
  13. SUMATRIPTAN [Suspect]
     Active Substance: SUMATRIPTAN
     Indication: Migraine
  14. SUMATRIPTAN [Suspect]
     Active Substance: SUMATRIPTAN
     Route: 065
  15. SUMATRIPTAN [Suspect]
     Active Substance: SUMATRIPTAN
     Route: 065
  16. SUMATRIPTAN [Suspect]
     Active Substance: SUMATRIPTAN

REACTIONS (8)
  - Cognitive disorder [Unknown]
  - Migraine [Recovering/Resolving]
  - Somnolence [Unknown]
  - Headache [Recovering/Resolving]
  - Dry mouth [Unknown]
  - Drug abuse [Unknown]
  - Incorrect dose administered [Unknown]
  - Drug ineffective [Unknown]
